FAERS Safety Report 7215483-1 (Version None)
Quarter: 2011Q1

REPORT INFORMATION
  Report Type: 
  Country: None (occurrence: None)
  Receive Date: 20110107
  Receipt Date: 20110103
  Transmission Date: 20110831
  Serious: Yes (Hospitalization)
  Sender: FDA-Public Use
  Company Number: A0883769A

PATIENT
  Age: 42 Year
  Sex: Female
  Weight: 103.6 kg

DRUGS (5)
  1. LAMICTAL [Suspect]
     Dosage: 200MG THREE TIMES PER DAY
     Route: 048
     Dates: start: 20100715
  2. IRON [Concomitant]
     Dates: start: 20100421
  3. FOLIC ACID [Concomitant]
     Dates: start: 20100421
  4. LAMOTRIGINE [Suspect]
     Dosage: 300MG TWICE PER DAY
     Route: 048
     Dates: end: 20100714
  5. PRENATAL [Concomitant]
     Dates: start: 20100421

REACTIONS (5)
  - LIVE BIRTH [None]
  - DRUG EXPOSURE DURING PREGNANCY [None]
  - DRUG INEFFECTIVE [None]
  - CONVULSION [None]
  - PREMATURE BABY [None]
